FAERS Safety Report 9157601 (Version 1)
Quarter: 2013Q1

REPORT INFORMATION
  Report Type: Spontaneous
  Country: US (occurrence: US)
  Receive Date: 20130312
  Receipt Date: 20130312
  Transmission Date: 20140127
  Serious: No
  Sender: FDA-Public Use
  Company Number: US-PFIZER INC-2013081307

PATIENT
  Age: 86 Year
  Sex: Female
  Weight: 55 kg

DRUGS (6)
  1. CALAN [Suspect]
     Indication: HYPERTENSION
     Dosage: 40 MG, 3X/DAY
     Route: 048
     Dates: start: 2010
  2. CALAN [Suspect]
     Dosage: 40 MG, 4X/DAY
     Route: 048
  3. CALAN [Suspect]
     Dosage: 40 MG, 3X/DAY
     Route: 048
     Dates: start: 2010
  4. CALAN [Suspect]
     Dosage: 40 MG, AS NEEDED (TAKES 40MG THREE TIMES A DAY AND IF REQUIRED SHE TAKES 40MG FOUR TIMES A DAY)
     Dates: start: 2011
  5. BENADRYL [Suspect]
     Dosage: UNK
  6. SYNTHROID [Concomitant]
     Indication: THYROID DISORDER
     Dosage: 1.5 MG, UNK

REACTIONS (6)
  - Blood pressure increased [Unknown]
  - Coagulopathy [Unknown]
  - Coagulation time prolonged [Unknown]
  - Dysphagia [Recovering/Resolving]
  - Lip swelling [Recovering/Resolving]
  - Somnolence [Unknown]
